FAERS Safety Report 23825035 (Version 1)
Quarter: 2024Q2

REPORT INFORMATION
  Report Type: Spontaneous
  Country: US (occurrence: US)
  Receive Date: 20240507
  Receipt Date: 20240507
  Transmission Date: 20240716
  Serious: No
  Sender: FDA-Public Use
  Company Number: US-002147023-NVSC2024US095826

PATIENT
  Age: 72 Year
  Sex: Male

DRUGS (1)
  1. LEQVIO [Suspect]
     Active Substance: INCLISIRAN SODIUM
     Indication: Low density lipoprotein decreased
     Dosage: 284 MG/KG
     Route: 058
     Dates: start: 20240405

REACTIONS (5)
  - Fatigue [Unknown]
  - Myalgia [Unknown]
  - Injection site reaction [Unknown]
  - Nasal congestion [Unknown]
  - Oedema peripheral [Unknown]
